FAERS Safety Report 21805964 (Version 3)
Quarter: 2023Q1

REPORT INFORMATION
  Report Type: Spontaneous
  Country: US (occurrence: US)
  Receive Date: 20230102
  Receipt Date: 20230317
  Transmission Date: 20230418
  Serious: No
  Sender: FDA-Public Use
  Company Number: US-002147023-NVSC2022US301970

PATIENT
  Sex: Male

DRUGS (2)
  1. ENTRESTO [Suspect]
     Active Substance: SACUBITRIL\VALSARTAN
     Indication: Product used for unknown indication
     Dosage: 1 DOSAGE FORM, BID (24/26) 3 ENTRESTO PILLS 24/26 OVER THE COURSE OF 1 AND A HALF DAYS
     Route: 065
  2. CARVEDILOL [Concomitant]
     Active Substance: CARVEDILOL
     Indication: Product used for unknown indication
     Dosage: UNK (6.25 UNSPECIFIED UNITS)
     Route: 065

REACTIONS (5)
  - Sluggishness [Unknown]
  - Heart rate increased [Unknown]
  - Adverse reaction [Unknown]
  - Asthenia [Unknown]
  - Dizziness [Unknown]
